FAERS Safety Report 6310642-4 (Version None)
Quarter: 2009Q3

REPORT INFORMATION
  Report Type: 
  Country: None (occurrence: None)
  Receive Date: 20090814
  Receipt Date: 20090810
  Transmission Date: 20100115
  Serious: Yes (Hospitalization, Other)
  Sender: FDA-Public Use
  Company Number: US-ALLERGAN-0911177US

PATIENT
  Age: 66 Year
  Sex: Female

DRUGS (12)
  1. ALPHAGAN P [Suspect]
     Indication: GLAUCOMA
     Dosage: UNK
     Route: 047
     Dates: start: 20090201
  2. SOTALOL HYDROCHLORIDE [Interacting]
     Indication: DRUG USE FOR UNKNOWN INDICATION
  3. AZOPT [Concomitant]
  4. ESTRACE [Concomitant]
     Indication: MENOPAUSE
     Dosage: TWICE A WEEK
  5. LIPITOR [Concomitant]
     Indication: BLOOD CHOLESTEROL INCREASED
     Dosage: 20 MG, QD
  6. METHIAMAZOLE [Concomitant]
     Indication: HYPERTHYROIDISM
     Dosage: 2.5 MG, QD
  7. DILTIAZEM [Concomitant]
     Indication: ATRIAL FIBRILLATION
     Dosage: 240 MG, BID
  8. TIKOSYN [Concomitant]
     Indication: HEART RATE IRREGULAR
  9. WARFARIN [Concomitant]
     Dosage: DOSE VARIES
  10. CALCIUM [Concomitant]
  11. MULTI-VITAMIN [Concomitant]
  12. BIOTIN [Concomitant]

REACTIONS (6)
  - ATRIAL FIBRILLATION [None]
  - DRUG INTERACTION [None]
  - HYPOTENSION [None]
  - NAUSEA [None]
  - TACHYCARDIA [None]
  - VOMITING [None]
